FAERS Safety Report 7352741-4 (Version None)
Quarter: 2011Q1

REPORT INFORMATION
  Report Type: 
  Country: None (occurrence: None)
  Receive Date: 20110304
  Receipt Date: 20100413
  Transmission Date: 20110831
  Serious: Yes (Other)
  Sender: FDA-Public Use
  Company Number: FR 2010 0085

PATIENT
  Age: 53 Year
  Sex: Female

DRUGS (1)
  1. LIPIODOL UF (ETHIODIZED OIL) [Suspect]
     Indication: THERAPEUTIC EMBOLISATION
     Dosage: INTAKE RATE: 1/1, INTRAVENOUS
     Route: 042
     Dates: start: 20100302, end: 20100302

REACTIONS (4)
  - NAUSEA [None]
  - LARYNGEAL OEDEMA [None]
  - VOMITING [None]
  - OFF LABEL USE [None]
